FAERS Safety Report 23123356 (Version 3)
Quarter: 2023Q4

REPORT INFORMATION
  Report Type: Spontaneous
  Country: JP (occurrence: JP)
  Receive Date: 20231030
  Receipt Date: 20231120
  Transmission Date: 20240110
  Serious: Yes (Death, Other)
  Sender: FDA-Public Use
  Company Number: None

PATIENT

DRUGS (1)
  1. BOTOX [Suspect]
     Active Substance: ONABOTULINUMTOXINA
     Indication: Muscle spasms
     Dosage: 300 IU
     Route: 065
     Dates: start: 20221216, end: 20221216

REACTIONS (1)
  - Death [Fatal]
